FAERS Safety Report 19278392 (Version 5)
Quarter: 2021Q3

REPORT INFORMATION
  Report Type: Report from Study
  Country: DE (occurrence: DE)
  Receive Date: 20210520
  Receipt Date: 20210819
  Transmission Date: 20211014
  Serious: Yes (Hospitalization)
  Sender: FDA-Public Use
  Company Number: NVSC2021DE105201

PATIENT
  Age: 31 Year
  Sex: Female

DRUGS (6)
  1. METHYLPREDNISOLONE. [Concomitant]
     Active Substance: METHYLPREDNISOLONE
     Indication: PRODUCT USED FOR UNKNOWN INDICATION
     Dosage: 1 G, QD
     Route: 042
     Dates: start: 20210507, end: 20210511
  2. TRAMETINIB [Suspect]
     Active Substance: TRAMETINIB
     Indication: BRAF V600E MUTATION POSITIVE
     Dosage: 2 MG, QD
     Route: 065
     Dates: start: 20210128, end: 20210502
  3. ACICLOVIR [Concomitant]
     Active Substance: ACYCLOVIR
     Indication: PRODUCT USED FOR UNKNOWN INDICATION
     Dosage: UNK
     Route: 042
     Dates: start: 20210505, end: 20210506
  4. AMPICILLIN [Concomitant]
     Active Substance: AMPICILLIN
     Indication: PRODUCT USED FOR UNKNOWN INDICATION
     Dosage: UNK
     Route: 042
     Dates: start: 20210505, end: 20210506
  5. CEFTRIAXONE. [Concomitant]
     Active Substance: CEFTRIAXONE
     Indication: PRODUCT USED FOR UNKNOWN INDICATION
     Dosage: 2 G, QD
     Route: 042
     Dates: start: 20210505, end: 20210511
  6. DABRAFENIB [Suspect]
     Active Substance: DABRAFENIB
     Indication: BRAF V600E MUTATION POSITIVE
     Dosage: 300 MG (75 MG 2?0?2)
     Route: 065
     Dates: start: 20210128, end: 20210502

REACTIONS (7)
  - Deafness [Recovered/Resolved]
  - Paraesthesia [Recovered/Resolved]
  - Guillain-Barre syndrome [Recovered/Resolved]
  - Facial paralysis [Recovered/Resolved]
  - Taste disorder [Recovered/Resolved]
  - Facial nerve disorder [Not Recovered/Not Resolved]
  - Pleocytosis [Not Recovered/Not Resolved]

NARRATIVE: CASE EVENT DATE: 20210503
